FAERS Safety Report 14392940 (Version 2)
Quarter: 2018Q1

REPORT INFORMATION
  Report Type: Other
  Country: US (occurrence: US)
  Receive Date: 20180116
  Receipt Date: 20180301
  Transmission Date: 20180509
  Serious: Yes (Hospitalization)
  Sender: FDA-Public Use
  Company Number: US-UNITED THERAPEUTICS-UNT-2017-018275

PATIENT
  Age: 47 Year
  Sex: Female
  Weight: 69.39 kg

DRUGS (3)
  1. REMODULIN [Suspect]
     Active Substance: TREPROSTINIL
     Dosage: 0.037 ?G/KG, CONTINUING
     Route: 058
     Dates: end: 201802
  2. REMODULIN [Suspect]
     Active Substance: TREPROSTINIL
     Indication: PULMONARY ARTERIAL HYPERTENSION
     Dosage: 0.038 ?G/KG, CONTINUING
     Route: 058
     Dates: start: 20170328
  3. SILDENAFIL CITRATE. [Concomitant]
     Active Substance: SILDENAFIL CITRATE
     Indication: PRODUCT USED FOR UNKNOWN INDICATION
     Route: 065

REACTIONS (7)
  - Malabsorption from application site [Unknown]
  - Pulmonary oedema [Unknown]
  - Corona virus infection [Unknown]
  - Diarrhoea [Unknown]
  - Cardiac septal defect [Unknown]
  - Blood pressure decreased [Unknown]
  - Hepatic failure [Unknown]

NARRATIVE: CASE EVENT DATE: 20171220
